FAERS Safety Report 25271523 (Version 1)
Quarter: 2025Q2

REPORT INFORMATION
  Report Type: Report from Study
  Country: TR (occurrence: TR)
  Receive Date: 20250506
  Receipt Date: 20250506
  Transmission Date: 20250716
  Serious: Yes (Congenital Anomaly, Other)
  Sender: RANBAXY
  Company Number: TR-SUN PHARMACEUTICAL INDUSTRIES LTD-2025R1-505945

PATIENT
  Sex: Male
  Weight: 2.95 kg

DRUGS (1)
  1. LAMOTRIGINE [Suspect]
     Active Substance: LAMOTRIGINE
     Indication: Epilepsy
     Dosage: 200 MILLIGRAM, QD
     Route: 064

REACTIONS (3)
  - Foetal exposure during pregnancy [Unknown]
  - Cryptorchism [Unknown]
  - Premature baby [Unknown]
